FAERS Safety Report 7093527-8 (Version None)
Quarter: 2010Q4

REPORT INFORMATION
  Report Type: 
  Country: None (occurrence: None)
  Receive Date: 20101110
  Receipt Date: 20090612
  Transmission Date: 20110411
  Serious: No
  Sender: FDA-Public Use
  Company Number: US-KINGPHARMUSA00001-K200900712

PATIENT
  Sex: Female
  Weight: 81.633 kg

DRUGS (1)
  1. FLECTOR [Suspect]
     Indication: ARTHRALGIA
     Dosage: 1 PATCH, QD
     Route: 061
     Dates: start: 20090520, end: 20090521

REACTIONS (3)
  - ABDOMINAL DISCOMFORT [None]
  - FEELING JITTERY [None]
  - FORMICATION [None]
